FAERS Safety Report 9664926 (Version 2)
Quarter: 2013Q4

REPORT INFORMATION
  Report Type: Spontaneous
  Country: FR (occurrence: FR)
  Receive Date: 20131101
  Receipt Date: 20131120
  Transmission Date: 20140711
  Serious: Yes (Hospitalization)
  Sender: FDA-Public Use
  Company Number: FR-PFIZER INC-2013310906

PATIENT
  Age: 85 Year
  Sex: Male

DRUGS (10)
  1. TAHOR [Suspect]
     Dosage: 40 MG, 1X/DAY
     Route: 048
     Dates: start: 201309, end: 20130921
  2. TRIATEC [Concomitant]
     Dosage: 2.5 MG, 1X/DAY
     Route: 048
     Dates: start: 201309, end: 20130925
  3. KREDEX [Concomitant]
     Dosage: 6.25 MG, 2X/DAY
     Route: 048
     Dates: start: 201309, end: 20130927
  4. PLAVIX [Concomitant]
     Dosage: 1 DF, DAILY
     Dates: start: 201309
  5. KARDEGIC [Concomitant]
     Dosage: 75 MG, 1X/DAY
     Dates: start: 201309
  6. PANTOPRAZOLE [Concomitant]
     Dosage: 20 MG, 1X/DAY
  7. TRANXENE [Concomitant]
     Dosage: 5 MG, 1X/DAY
  8. ZOLPIDEM [Concomitant]
     Dosage: 1 DF, 1X/DAY
  9. ZOXAN [Concomitant]
     Dosage: 8 MG, 1X/DAY
  10. SPASFON [Concomitant]
     Indication: PAIN
     Dosage: UNK

REACTIONS (4)
  - Jaundice cholestatic [Not Recovered/Not Resolved]
  - Hepatocellular injury [Recovering/Resolving]
  - Rhabdomyolysis [Recovered/Resolved]
  - Vomiting [Recovered/Resolved]
